FAERS Safety Report 20306659 (Version 1)
Quarter: 2022Q1

REPORT INFORMATION
  Report Type: Spontaneous
  Country: US (occurrence: US)
  Receive Date: 20220106
  Receipt Date: 20220106
  Transmission Date: 20220423
  Serious: Yes (Other)
  Sender: FDA-Public Use
  Company Number: US-TEVA-2021-US-1995559

PATIENT
  Age: 9 Decade
  Sex: Female

DRUGS (4)
  1. FULVESTRANT [Suspect]
     Active Substance: FULVESTRANT
     Indication: Breast cancer
     Route: 065
     Dates: start: 202006
  2. ALPELISIB [Suspect]
     Active Substance: ALPELISIB
     Indication: Breast cancer
     Route: 065
     Dates: start: 202006
  3. ALPELISIB [Suspect]
     Active Substance: ALPELISIB
     Dosage: 150 MILLIGRAM DAILY; RESTARTED ON DAY 21
     Route: 065
  4. ALPELISIB [Suspect]
     Active Substance: ALPELISIB
     Dosage: 200 MILLIGRAM DAILY; DOSE INCREASED ON DAY 52
     Route: 065

REACTIONS (5)
  - Hyperglycaemia [Recovered/Resolved]
  - Polydipsia [Unknown]
  - Polyuria [Unknown]
  - Fatigue [Unknown]
  - Drug ineffective [Unknown]
